FAERS Safety Report 12618932 (Version 4)
Quarter: 2016Q3

REPORT INFORMATION
  Report Type: Spontaneous
  Country: DE (occurrence: DE)
  Receive Date: 20160803
  Receipt Date: 20160922
  Transmission Date: 20161109
  Serious: Yes (Life-Threatening, Hospitalization)
  Sender: FDA-Public Use
  Company Number: DE-JNJFOC-20160718703

PATIENT
  Age: 30 Year
  Sex: Female

DRUGS (1)
  1. STELARA [Suspect]
     Active Substance: USTEKINUMAB
     Indication: PUSTULAR PSORIASIS
     Route: 058
     Dates: start: 2014, end: 20160707

REACTIONS (17)
  - Pulmonary oedema [Recovering/Resolving]
  - Anaemia [Recovering/Resolving]
  - Impetigo herpetiformis [Recovering/Resolving]
  - Cardiac failure [Recovering/Resolving]
  - Product use issue [Unknown]
  - Protein-losing gastroenteropathy [Not Recovered/Not Resolved]
  - Pneumonia [Recovering/Resolving]
  - Exposure during pregnancy [Recovered/Resolved]
  - Hypokalaemia [Unknown]
  - Pleural effusion [Unknown]
  - Dermatitis exfoliative [Not Recovered/Not Resolved]
  - Premature labour [Recovered/Resolved]
  - Off label use [Unknown]
  - Epstein-Barr virus infection [Unknown]
  - Herpes simplex [Unknown]
  - Renal disorder [Recovering/Resolving]
  - Sepsis [Recovering/Resolving]

NARRATIVE: CASE EVENT DATE: 2014
